FAERS Safety Report 11607683 (Version 2)
Quarter: 2016Q1

REPORT INFORMATION
  Report Type: Spontaneous
  Country: US (occurrence: US)
  Receive Date: 20151007
  Receipt Date: 20160314
  Transmission Date: 20160525
  Serious: Yes (Disabling, Other)
  Sender: FDA-Public Use
  Company Number: US-PFIZER INC-2015335549

PATIENT
  Age: 54 Year
  Sex: Female
  Weight: 75 kg

DRUGS (14)
  1. LIPITOR [Suspect]
     Active Substance: ATORVASTATIN CALCIUM
     Indication: BLOOD CHOLESTEROL INCREASED
     Dosage: 20 MG (ONE TABLET), DAILY
     Route: 048
     Dates: start: 2003
  2. VITAMIN D3 [Concomitant]
     Active Substance: CHOLECALCIFEROL
     Dosage: 1000 IU, DAILY
     Route: 048
     Dates: start: 2000
  3. OMEGA-3 FATTY ACIDS [Concomitant]
     Active Substance: OMEGA-3 FATTY ACIDS
     Indication: VITAMIN SUPPLEMENTATION
     Dosage: 300 MG, DAILY (EVERY DAY)
     Route: 048
     Dates: start: 2000
  4. COLESTID [Concomitant]
     Active Substance: COLESTIPOL HYDROCHLORIDE
     Indication: BLOOD CHOLESTEROL ABNORMAL
     Dosage: 1 G, AS NEEDED
     Route: 048
     Dates: start: 2003
  5. LIPITOR [Suspect]
     Active Substance: ATORVASTATIN CALCIUM
     Indication: BLOOD TRIGLYCERIDES INCREASED
  6. SYNTHROID [Concomitant]
     Active Substance: LEVOTHYROXINE SODIUM
     Indication: HYPOTHYROIDISM
     Dosage: 88 MG, DAILY (PER DAY)
     Dates: start: 1995
  7. VITAMIN D2 [Concomitant]
     Active Substance: ERGOCALCIFEROL
     Indication: VITAMIN SUPPLEMENTATION
     Dosage: 50000 IU, WEEKLY
     Route: 048
     Dates: start: 2000
  8. NASONEX [Concomitant]
     Active Substance: MOMETASONE FUROATE
     Indication: ASTHMA
     Dosage: UNK
     Route: 045
     Dates: start: 2000
  9. FAMVIR [Concomitant]
     Active Substance: FAMCICLOVIR
     Indication: HERPES VIRUS INFECTION
     Dosage: 500 MG, DAILY (ONE TABLET PER DAY)
     Route: 048
     Dates: start: 2000
  10. LIPITOR [Suspect]
     Active Substance: ATORVASTATIN CALCIUM
     Indication: BLOOD CHOLESTEROL ABNORMAL
  11. MULTIPLE VITAMIN [Concomitant]
     Active Substance: VITAMINS
     Indication: VITAMIN SUPPLEMENTATION
     Dosage: 1 DF, DAILY (ONE TABLET PER DAY)
     Dates: start: 2001
  12. THERAGRAN [Concomitant]
     Active Substance: VITAMINS
     Indication: VITAMIN SUPPLEMENTATION
     Dosage: 2 DF, DAILY
     Route: 048
     Dates: start: 2000
  13. PROVENTIL HFA 90 UG/ACTUATION INHALER [Concomitant]
     Indication: ASTHMA
     Dosage: UNK (1 TO 2 PUFFS INHALED EVERY 4 TO 6 HOURS)
     Dates: start: 1994
  14. VALTREX [Concomitant]
     Active Substance: VALACYCLOVIR HYDROCHLORIDE
     Indication: HERPES VIRUS INFECTION
     Dosage: 500 MG, DAILY (PER DAY)
     Dates: start: 2000

REACTIONS (8)
  - Hypoaesthesia [Not Recovered/Not Resolved]
  - Muscle disorder [Not Recovered/Not Resolved]
  - Hepatic steatosis [Not Recovered/Not Resolved]
  - Type 2 diabetes mellitus [Not Recovered/Not Resolved]
  - Paraesthesia [Not Recovered/Not Resolved]
  - Asthenia [Not Recovered/Not Resolved]
  - Bone loss [Not Recovered/Not Resolved]
  - Gastrointestinal disorder [Not Recovered/Not Resolved]

NARRATIVE: CASE EVENT DATE: 2005
